FAERS Safety Report 4918584-3 (Version None)
Quarter: 2006Q1

REPORT INFORMATION
  Report Type: 
  Country: None (occurrence: None)
  Receive Date: 20060221
  Receipt Date: 20060221
  Transmission Date: 20060701
  Serious: Yes (Hospitalization)
  Sender: FDA-Public Use
  Company Number: None

PATIENT
  Sex: Male
  Weight: 104.3273 kg

DRUGS (1)
  1. ARIPIPRAZOLE 30MG TABLETS [Suspect]
     Indication: SCHIZOPHRENIA
     Dosage: 30MG PO Q AM
     Route: 048
     Dates: start: 20060130, end: 20060215

REACTIONS (7)
  - AGITATION [None]
  - ANXIETY [None]
  - FEELING ABNORMAL [None]
  - HALLUCINATION, AUDITORY [None]
  - INSOMNIA [None]
  - NECK PAIN [None]
  - PARANOIA [None]
